FAERS Safety Report 16854144 (Version 2)
Quarter: 2019Q4

REPORT INFORMATION
  Report Type: Report from Study
  Country: GB (occurrence: GB)
  Receive Date: 20190926
  Receipt Date: 20191011
  Transmission Date: 20200122
  Serious: Yes (Other)
  Sender: FDA-Public Use
  Company Number: GB-AUROBINDO-AUR-APL-2019-062196

PATIENT
  Sex: Male

DRUGS (5)
  1. RIVAROXABAN 20 MG FILM COATED TABLETS [Interacting]
     Active Substance: RIVAROXABAN
     Indication: ANTICOAGULANT THERAPY
  2. RIVAROXABAN 20 MG FILM COATED TABLETS [Suspect]
     Active Substance: RIVAROXABAN
     Indication: EMBOLISM VENOUS
     Dosage: 20 MILLIGRAM, DAILY
     Route: 065
  3. EFAVIRENZ. [Interacting]
     Active Substance: EFAVIRENZ
     Indication: ANTIRETROVIRAL THERAPY
     Dosage: UNK
     Route: 065
  4. ABACAVIR. [Concomitant]
     Active Substance: ABACAVIR
     Indication: PRODUCT USED FOR UNKNOWN INDICATION
     Dosage: UNK
     Route: 065
  5. LAMIVUDINE. [Concomitant]
     Active Substance: LAMIVUDINE
     Indication: PRODUCT USED FOR UNKNOWN INDICATION
     Dosage: UNK
     Route: 065

REACTIONS (2)
  - Drug interaction [Unknown]
  - Embolism venous [Recovered/Resolved]
